FAERS Safety Report 8044601-0 (Version None)
Quarter: 2012Q1

REPORT INFORMATION
  Report Type: 
  Country: None (occurrence: None)
  Receive Date: 20120113
  Receipt Date: 20120113
  Transmission Date: 20120608
  Serious: Yes (Death, Life-Threatening, Hospitalization, Disabling, Congenital Anomaly, Other)
  Sender: FDA-Public Use
  Company Number: None

PATIENT
  Age: 27 Year
  Sex: Female
  Weight: 60.781 kg

DRUGS (2)
  1. LEVOCETIRIZINE DIHYDROCHLORIDE [Suspect]
     Indication: RHINITIS
     Dates: start: 20111020, end: 20120102
  2. LEVOCETIRIZINE DIHYDROCHLORIDE [Suspect]
     Indication: MULTIPLE ALLERGIES
     Dates: start: 20111020, end: 20120102

REACTIONS (7)
  - FATIGUE [None]
  - ARTHRALGIA [None]
  - JOINT CREPITATION [None]
  - MUSCULOSKELETAL PAIN [None]
  - JOINT LOCK [None]
  - PAIN IN EXTREMITY [None]
  - GAIT DISTURBANCE [None]
